FAERS Safety Report 4924651-0 (Version None)
Quarter: 2006Q1

REPORT INFORMATION
  Report Type: 
  Country: None (occurrence: None)
  Receive Date: 20060222
  Receipt Date: 20060210
  Transmission Date: 20060701
  Serious: Yes (Hospitalization)
  Sender: FDA-Public Use
  Company Number: 2005-10-0530

PATIENT
  Age: 68 Year
  Sex: Male
  Weight: 51 kg

DRUGS (8)
  1. PEG-INTRON [Suspect]
     Indication: HEPATITIS C
     Dosage: 100 MCG QW SUBCUTANEOUS
     Route: 058
     Dates: start: 20050725, end: 20050919
  2. REBETOL [Suspect]
     Indication: HEPATITIS C
     Dosage: 600-400* MG ORAL
     Route: 048
     Dates: start: 20050725, end: 20050924
  3. SELBEX CAPSULES [Concomitant]
  4. GASTER TABLETS [Concomitant]
  5. BLOPRESS (CANDESARTAN CILEXETIL) [Concomitant]
  6. NATRIX TABLETS [Concomitant]
  7. AMLODIPINE BESILATE TABLETS [Concomitant]
  8. DOGMATYL CAPSULES [Concomitant]

REACTIONS (3)
  - CEREBRAL INFARCTION [None]
  - HAEMOGLOBIN DECREASED [None]
  - TRANSIENT ISCHAEMIC ATTACK [None]
